FAERS Safety Report 11783603 (Version 3)
Quarter: 2016Q1

REPORT INFORMATION
  Report Type: Report from Study
  Country: US (occurrence: US)
  Receive Date: 20151127
  Receipt Date: 20160126
  Transmission Date: 20160525
  Serious: Yes (Hospitalization, Other)
  Sender: FDA-Public Use
  Company Number: US-AMGEN-USASL2015124197

PATIENT
  Age: 80 Year
  Sex: Female

DRUGS (1)
  1. PROLIA [Suspect]
     Active Substance: DENOSUMAB
     Indication: OSTEOPOROSIS POSTMENOPAUSAL
     Dosage: UNK
     Route: 065
     Dates: start: 201412

REACTIONS (7)
  - Postoperative wound infection [Unknown]
  - Infection [Unknown]
  - Tooth infection [Unknown]
  - Skin cancer [Unknown]
  - Hernia [Unknown]
  - Tooth extraction [Unknown]
  - Post procedural discharge [Unknown]

NARRATIVE: CASE EVENT DATE: 201502
